FAERS Safety Report 4382503-1 (Version None)
Quarter: 2004Q2

REPORT INFORMATION
  Report Type: 
  Country: None (occurrence: None)
  Receive Date: 20040617
  Receipt Date: 20040524
  Transmission Date: 20050107
  Serious: Yes (Hospitalization)
  Sender: FDA-Public Use
  Company Number: 2004-BP-01158NB

PATIENT
  Age: 76 Year
  Sex: Male

DRUGS (2)
  1. MICARDIS [Suspect]
     Indication: HYPERTENSION
     Dosage: 20 MG PO
     Route: 048
     Dates: start: 20031017, end: 20040210
  2. PREDNISOLONE [Concomitant]

REACTIONS (1)
  - INTERSTITIAL LUNG DISEASE [None]
